FAERS Safety Report 24286519 (Version 2)
Quarter: 2024Q4

REPORT INFORMATION
  Report Type: Report from Study
  Country: US (occurrence: US)
  Receive Date: 20240905
  Receipt Date: 20241001
  Transmission Date: 20250115
  Serious: No
  Sender: ALEXION PHARMACEUTICALS
  Company Number: US-AstraZeneca-CH-00694193A

PATIENT

DRUGS (1)
  1. ULTOMIRIS [Suspect]
     Active Substance: RAVULIZUMAB-CWVZ
     Indication: Myasthenia gravis
     Dosage: UNK

REACTIONS (6)
  - Sensitivity to weather change [Unknown]
  - Dyspnoea [Unknown]
  - Somnolence [Unknown]
  - Sinus disorder [Recovering/Resolving]
  - Therapeutic product effect incomplete [Unknown]
  - Feeling abnormal [Unknown]
